FAERS Safety Report 7903063-1 (Version None)
Quarter: 2011Q4

REPORT INFORMATION
  Report Type: 
  Country: None (occurrence: None)
  Receive Date: 20111104
  Receipt Date: 20111024
  Transmission Date: 20120403
  Serious: Yes (Other)
  Sender: FDA-Public Use
  Company Number: 2011SP038701

PATIENT
  Age: 41 Year
  Sex: Female

DRUGS (10)
  1. NEURONTIN [Concomitant]
  2. BENADRYL [Concomitant]
  3. IBUPROFEN [Concomitant]
  4. SENNA [Concomitant]
  5. LEVOTHYROXINE SODIUM [Concomitant]
  6. PAXIL [Concomitant]
  7. PEG-INTRON [Suspect]
     Indication: HEPATITIS C
     Dates: start: 20110715
  8. RIBAVIRIN [Suspect]
     Indication: HEPATITIS C
     Dates: start: 20110715
  9. KLONOPIN [Concomitant]
  10. CLONIDINE [Concomitant]

REACTIONS (15)
  - AGGRESSION [None]
  - WEIGHT DECREASED [None]
  - POLLAKIURIA [None]
  - COUGH [None]
  - MOOD SWINGS [None]
  - PRURITUS [None]
  - INJECTION SITE HAEMATOMA [None]
  - FALL [None]
  - DEPRESSION [None]
  - DIZZINESS [None]
  - COLD SWEAT [None]
  - VISION BLURRED [None]
  - GAIT DISTURBANCE [None]
  - RASH [None]
  - INCREASED UPPER AIRWAY SECRETION [None]
